FAERS Safety Report 23666510 (Version 1)
Quarter: 2024Q1

REPORT INFORMATION
  Report Type: Spontaneous
  Country: US (occurrence: US)
  Receive Date: 20240324
  Receipt Date: 20240324
  Transmission Date: 20240410
  Serious: No
  Sender: FDA-Public Use
  Company Number: US-JNJFOC-20240343731

PATIENT
  Sex: Male

DRUGS (1)
  1. DARZALEX [Suspect]
     Active Substance: DARATUMUMAB
     Indication: Product used for unknown indication
     Route: 065

REACTIONS (6)
  - Spinal disorder [Unknown]
  - Laboratory test abnormal [Unknown]
  - Asthenia [Unknown]
  - Back pain [Unknown]
  - Nausea [Unknown]
  - Decreased appetite [Unknown]
